FAERS Safety Report 15755759 (Version 1)
Quarter: 2018Q4

REPORT INFORMATION
  Report Type: Spontaneous
  Country: DE (occurrence: DE)
  Receive Date: 20181224
  Receipt Date: 20181224
  Transmission Date: 20190205
  Serious: Yes (Other)
  Sender: FDA-Public Use
  Company Number: DE-AUROBINDO-AUR-APL-2018-061930

PATIENT
  Age: 35 Year
  Sex: Male

DRUGS (1)
  1. MODAFINIL. [Suspect]
     Active Substance: MODAFINIL
     Indication: PRODUCT USED FOR UNKNOWN INDICATION
     Dosage: UNKNOWN
     Route: 065

REACTIONS (7)
  - Coma [Unknown]
  - Epilepsy [Unknown]
  - Headache [Unknown]
  - Disorientation [Unknown]
  - Loss of consciousness [Unknown]
  - Somnolence [Unknown]
  - Poisoning [Unknown]
